FAERS Safety Report 9401658 (Version 1)
Quarter: 2013Q3

REPORT INFORMATION
  Report Type: Spontaneous
  Country: US (occurrence: US)
  Receive Date: 20130716
  Receipt Date: 20130716
  Transmission Date: 20140515
  Serious: No
  Sender: FDA-Public Use
  Company Number: US-BIOGENIDEC-2013BI063275

PATIENT
  Age: 62 Year
  Sex: Female

DRUGS (3)
  1. AVONEX [Suspect]
     Indication: MULTIPLE SCLEROSIS
     Route: 030
     Dates: start: 20080722, end: 201306
  2. AVONEX [Suspect]
     Indication: MULTIPLE SCLEROSIS
     Route: 030
     Dates: start: 201306
  3. PREDNISONE [Concomitant]
     Indication: DERMATITIS CONTACT
     Dates: start: 20130710

REACTIONS (5)
  - Injection site haemorrhage [Recovered/Resolved]
  - Poor quality sleep [Recovered/Resolved]
  - Wound [Recovered/Resolved]
  - Dermatitis contact [Recovered/Resolved]
  - Muscle spasms [Recovered/Resolved]
